FAERS Safety Report 7078862-1 (Version None)
Quarter: 2010Q4

REPORT INFORMATION
  Report Type: 
  Country: None (occurrence: None)
  Receive Date: 20101102
  Receipt Date: 20101025
  Transmission Date: 20110411
  Serious: Yes (Other)
  Sender: FDA-Public Use
  Company Number: GB-SANOFI-AVENTIS-2010SA065171

PATIENT
  Age: 66 Year
  Sex: Female
  Weight: 61.7 kg

DRUGS (4)
  1. RILUTEK [Suspect]
     Indication: MOTOR NEURONE DISEASE
     Route: 048
     Dates: start: 20060101
  2. CITALOPRAM HYDROBROMIDE [Suspect]
     Indication: DEPRESSION
     Route: 048
     Dates: start: 20101003, end: 20101005
  3. CITALOPRAM HYDROBROMIDE [Suspect]
     Indication: ANXIETY
     Route: 048
     Dates: start: 20101003, end: 20101005
  4. CITALOPRAM HYDROBROMIDE [Suspect]
     Indication: PANIC ATTACK
     Route: 048
     Dates: start: 20101003, end: 20101005

REACTIONS (3)
  - ATRIAL FIBRILLATION [None]
  - ATRIAL TACHYCARDIA [None]
  - EXTRASYSTOLES [None]
